FAERS Safety Report 4451935-5 (Version None)
Quarter: 2004Q3

REPORT INFORMATION
  Report Type: 
  Country: None (occurrence: None)
  Receive Date: 20040916
  Receipt Date: 20040902
  Transmission Date: 20050211
  Serious: Yes (Hospitalization)
  Sender: FDA-Public Use
  Company Number: 2004AL000037

PATIENT
  Age: 16 Year
  Sex: Female

DRUGS (1)
  1. PROMETH W/CODEINE COUGH SYRUP (PROMETHAZINE 6.25 [Suspect]
     Dosage: 6.25 MG

REACTIONS (6)
  - ANXIETY [None]
  - CONFUSIONAL STATE [None]
  - HALLUCINATIONS, MIXED [None]
  - INFLUENZA SEROLOGY POSITIVE [None]
  - PARANOIA [None]
  - PSYCHOTIC DISORDER [None]
